FAERS Safety Report 4269061-7 (Version None)
Quarter: 2004Q1

REPORT INFORMATION
  Report Type: 
  Country: None (occurrence: None)
  Receive Date: 20040108
  Receipt Date: 20031229
  Transmission Date: 20041129
  Serious: Yes (Hospitalization)
  Sender: FDA-Public Use
  Company Number: 2003188247CA

PATIENT
  Age: 61 Year
  Sex: Male

DRUGS (6)
  1. BEXTRA [Suspect]
     Indication: ARTHRITIS
     Dosage: 20 MG, QD, ORAL
     Route: 048
     Dates: start: 20030801, end: 20031101
  2. BEXTRA [Suspect]
     Indication: ARTHRITIS
     Dosage: 20 MG, QD, ORAL
     Route: 048
     Dates: start: 20031101
  3. SILDENAFIL CITRATE (SILDENAFIL CITRATE) [Concomitant]
  4. WARFARIN SODIUM [Concomitant]
  5. LANSOPRAZOLE [Concomitant]
  6. TESTOSTERONE [Concomitant]

REACTIONS (4)
  - DIZZINESS [None]
  - FALL [None]
  - TINNITUS [None]
  - VERTIGO [None]
